FAERS Safety Report 7891611-X (Version None)
Quarter: 2011Q4

REPORT INFORMATION
  Report Type: 
  Country: None (occurrence: None)
  Receive Date: 20111103
  Receipt Date: 20110808
  Transmission Date: 20120403
  Serious: No
  Sender: FDA-Public Use
  Company Number: US-AMGEN-USASP2011034484

PATIENT
  Age: 84 Year
  Sex: Female

DRUGS (2)
  1. ENBREL [Suspect]
     Indication: RHEUMATOID ARTHRITIS
     Dosage: 50 MG, QWK
     Dates: start: 20110401
  2. TREXALL [Concomitant]
     Dosage: 1 MG, QWK
     Dates: start: 20090701

REACTIONS (7)
  - SINUSITIS [None]
  - DRUG INEFFECTIVE [None]
  - VISUAL ACUITY REDUCED [None]
  - TOOTHACHE [None]
  - INJECTION SITE HAEMORRHAGE [None]
  - VISUAL IMPAIRMENT [None]
  - INJECTION SITE PAIN [None]
